FAERS Safety Report 9437572 (Version 2)
Quarter: 2014Q2

REPORT INFORMATION
  Report Type: Spontaneous
  Country: US (occurrence: US)
  Receive Date: 20130802
  Receipt Date: 20140402
  Transmission Date: 20141212
  Serious: Yes (Hospitalization, Disabling)
  Sender: FDA-Public Use
  Company Number: US-009507513-1307USA017135

PATIENT
  Sex: Female
  Weight: 113.38 kg

DRUGS (2)
  1. NUVARING [Suspect]
     Indication: CONTRACEPTION
     Dosage: UNK
     Route: 067
     Dates: start: 200603, end: 20091026
  2. NUVARING [Suspect]
     Indication: MENSTRUATION IRREGULAR

REACTIONS (16)
  - Vertigo positional [Unknown]
  - Deep vein thrombosis [Unknown]
  - Coagulopathy [Unknown]
  - Off label use [Unknown]
  - Arthritis [Unknown]
  - Gallbladder operation [Unknown]
  - Cholelithiasis [Unknown]
  - Palpitations [Unknown]
  - Atrial fibrillation [Unknown]
  - Migraine [Unknown]
  - Cardiovascular insufficiency [Unknown]
  - Varicose vein [Unknown]
  - Temperature intolerance [Unknown]
  - Pain in extremity [Unknown]
  - Nausea [Unknown]
  - Polymenorrhoea [Unknown]
